FAERS Safety Report 10086692 (Version 1)
Quarter: 2014Q2

REPORT INFORMATION
  Report Type: Spontaneous
  Country: US (occurrence: None)
  Receive Date: 20140417
  Receipt Date: 20140417
  Transmission Date: 20141212
  Serious: Yes (Hospitalization)
  Sender: FDA-Public Use
  Company Number: None

PATIENT
  Age: 14 Year
  Sex: Male
  Weight: 83.9 kg

DRUGS (1)
  1. KETOROLAC [Suspect]
     Indication: PAIN IN EXTREMITY
     Route: 030
     Dates: start: 20140410

REACTIONS (4)
  - Inappropriate affect [None]
  - Tearfulness [None]
  - Tremor [None]
  - Rash [None]
